FAERS Safety Report 4766096-2 (Version None)
Quarter: 2005Q3

REPORT INFORMATION
  Report Type: 
  Country: None (occurrence: None)
  Receive Date: 20050912
  Receipt Date: 20050620
  Transmission Date: 20060218
  Serious: Yes (Hospitalization)
  Sender: FDA-Public Use
  Company Number: JP-MERCK-0506USA03426

PATIENT
  Age: 60 Year
  Sex: Female

DRUGS (3)
  1. MENATETRENONE [Concomitant]
     Indication: OSTEOPOROSIS
     Route: 048
  2. FOSAMAX [Suspect]
     Indication: OSTEOPOROSIS
     Route: 048
     Dates: start: 20030101, end: 20050621
  3. CALCIUM LACTATE [Concomitant]
     Indication: OSTEOPOROSIS
     Route: 048

REACTIONS (4)
  - COUGH [None]
  - NASOPHARYNGEAL DISORDER [None]
  - PNEUMONIA [None]
  - THERAPY NON-RESPONDER [None]
